FAERS Safety Report 5311401-1 (Version None)
Quarter: 2007Q2

REPORT INFORMATION
  Report Type: 
  Country: None (occurrence: None)
  Receive Date: 20070430
  Receipt Date: 20070423
  Transmission Date: 20071010
  Serious: Yes (Life-Threatening, Hospitalization)
  Sender: FDA-Public Use
  Company Number: ES-AVENTIS-200711980EU

PATIENT
  Age: 72 Year
  Sex: Male

DRUGS (6)
  1. SEGURIL                            /00032601/ [Suspect]
     Indication: ESSENTIAL HYPERTENSION
     Route: 048
     Dates: end: 20060827
  2. RENITEC                            /00574901/ [Suspect]
     Indication: ESSENTIAL HYPERTENSION
     Route: 048
     Dates: end: 20060827
  3. ALDACTONE [Suspect]
     Indication: ESSENTIAL HYPERTENSION
     Route: 048
     Dates: start: 20060704, end: 20060827
  4. MANIDON [Suspect]
     Indication: CARDIAC DISORDER
     Route: 048
     Dates: end: 20060827
  5. ALOPURINOL [Concomitant]
     Indication: GOUT
     Route: 048
     Dates: end: 20060827
  6. ZARATOR                            /01326101/ [Concomitant]
     Indication: HYPERLIPIDAEMIA
     Route: 048
     Dates: end: 20060827

REACTIONS (4)
  - ATRIOVENTRICULAR BLOCK COMPLETE [None]
  - HAEMODIALYSIS [None]
  - HYPERKALAEMIA [None]
  - RENAL FAILURE ACUTE [None]
